FAERS Safety Report 8288446-5 (Version None)
Quarter: 2012Q2

REPORT INFORMATION
  Report Type: 
  Country: None (occurrence: None)
  Receive Date: 20120416
  Receipt Date: 20120404
  Transmission Date: 20120825
  Serious: Yes (Other)
  Sender: FDA-Public Use
  Company Number: CA-ROCHE-1048926

PATIENT
  Sex: Female
  Weight: 65.83 kg

DRUGS (15)
  1. METHOTREXATE [Concomitant]
     Indication: RHEUMATOID ARTHRITIS
     Route: 058
     Dates: start: 19910601
  2. ACETAMINOPHEN [Concomitant]
     Route: 048
     Dates: start: 20120222, end: 20120222
  3. TYLENOL W/ CODEINE NO. 3 [Concomitant]
  4. FOSAMAX [Concomitant]
  5. VITAMIN D [Concomitant]
  6. DIPHENHYDRAMINE HCL [Concomitant]
     Route: 048
     Dates: start: 20120222, end: 20120222
  7. CELEBREX [Concomitant]
     Indication: RHEUMATOID ARTHRITIS
     Route: 048
  8. DOXYCYCLINE [Concomitant]
     Indication: RHEUMATOID ARTHRITIS
     Route: 048
  9. OXYCONTIN [Concomitant]
  10. SOLUCORT [Concomitant]
     Route: 042
     Dates: start: 20120222, end: 20120222
  11. LEUCOVORIN CALCIUM [Concomitant]
  12. COVASTIN [Concomitant]
  13. CALCIUM CARBONATE [Concomitant]
  14. MABTHERA [Suspect]
     Indication: RHEUMATOID ARTHRITIS
     Route: 042
     Dates: start: 20090216
  15. NEXIUM [Concomitant]

REACTIONS (2)
  - JOINT ARTHROPLASTY [None]
  - MULTIPLE MYELOMA [None]
